FAERS Safety Report 19146323 (Version 2)
Quarter: 2021Q3

REPORT INFORMATION
  Report Type: Spontaneous
  Country: CA (occurrence: CA)
  Receive Date: 20210416
  Receipt Date: 20210817
  Transmission Date: 20211014
  Serious: Yes (Other)
  Sender: FDA-Public Use
  Company Number: CA-PFIZER INC-2021381683

PATIENT
  Age: 61 Year
  Sex: Male
  Weight: 61.22 kg

DRUGS (3)
  1. PANTOPRAZOLE [Suspect]
     Active Substance: PANTOPRAZOLE
     Indication: GASTROOESOPHAGEAL REFLUX DISEASE
     Dosage: 1 DF, 2X/DAY
     Route: 048
     Dates: start: 20200302, end: 20201001
  2. RAMIPRIL. [Concomitant]
     Active Substance: RAMIPRIL
     Dosage: 5 MG, 2X/DAY
     Route: 065
  3. PANTOPRAZOLE [Suspect]
     Active Substance: PANTOPRAZOLE
     Indication: EOSINOPHILIC OESOPHAGITIS

REACTIONS (3)
  - Eye movement disorder [Recovered/Resolved]
  - Vertigo [Recovered/Resolved]
  - Feeling abnormal [Recovered/Resolved]
